FAERS Safety Report 5419378-5 (Version None)
Quarter: 2007Q3

REPORT INFORMATION
  Report Type: 
  Country: None (occurrence: None)
  Receive Date: 20070815
  Receipt Date: 20070806
  Transmission Date: 20080115
  Serious: Yes (Hospitalization)
  Sender: FDA-Public Use
  Company Number: GXKR2007US06769

PATIENT
  Age: 25 Year
  Sex: Male

DRUGS (1)
  1. METHYLPREDNISOLONE [Suspect]
     Indication: DEAFNESS NEUROSENSORY
     Dosage: 2 DF, INJECTION NOS

REACTIONS (2)
  - IMPAIRED HEALING [None]
  - TYMPANIC MEMBRANE PERFORATION [None]
